FAERS Safety Report 5032937-7 (Version None)
Quarter: 2006Q2

REPORT INFORMATION
  Report Type: 
  Country: None (occurrence: None)
  Receive Date: 20060620
  Receipt Date: 20060613
  Transmission Date: 20061013
  Serious: Yes (Other)
  Sender: FDA-Public Use
  Company Number: 200612906BWH

PATIENT
  Sex: Female

DRUGS (1)
  1. AVELOX [Suspect]
     Indication: SINUSITIS
     Dosage: ORAL
     Route: 048
     Dates: start: 20060404, end: 20060408

REACTIONS (24)
  - AMNESIA [None]
  - ARTHRALGIA [None]
  - ASTHENIA [None]
  - CANDIDIASIS [None]
  - CERVIX CARCINOMA RECURRENT [None]
  - COGNITIVE DISORDER [None]
  - CONVULSION [None]
  - DIFFICULTY IN WALKING [None]
  - DIZZINESS [None]
  - DYSPHAGIA [None]
  - FALL [None]
  - HEADACHE [None]
  - HYPOAESTHESIA [None]
  - IMPAIRED WORK ABILITY [None]
  - INFECTION IN AN IMMUNOCOMPROMISED HOST [None]
  - LOSS OF CONTROL OF LEGS [None]
  - MUSCULAR WEAKNESS [None]
  - ORAL CANDIDIASIS [None]
  - PARAESTHESIA [None]
  - SPEECH DISORDER [None]
  - TREMOR [None]
  - VERBIGERATION [None]
  - VISUAL DISTURBANCE [None]
  - VITAMIN B12 DECREASED [None]
